FAERS Safety Report 18473437 (Version 1)
Quarter: 2020Q4

REPORT INFORMATION
  Report Type: Spontaneous
  Country: US (occurrence: US)
  Receive Date: 20201106
  Receipt Date: 20201106
  Transmission Date: 20210114
  Serious: Yes (Life-Threatening, Disabling)
  Sender: FDA-Public Use
  Company Number: None

PATIENT
  Age: 52 Year
  Sex: Female
  Weight: 41.4 kg

DRUGS (1)
  1. DOTAREM [Suspect]
     Active Substance: GADOTERATE MEGLUMINE
     Indication: MAGNETIC RESONANCE IMAGING
     Dosage: ?          QUANTITY:20 CC;OTHER FREQUENCY:ONCE DURING MRA;OTHER ROUTE:INTRAVENOUS?
     Dates: start: 20200205

REACTIONS (7)
  - Muscular weakness [None]
  - Abdominal pain [None]
  - Diarrhoea [None]
  - Hypoaesthesia [None]
  - Asthenia [None]
  - Headache [None]
  - Paraesthesia [None]

NARRATIVE: CASE EVENT DATE: 20200205
